FAERS Safety Report 16911305 (Version 1)
Quarter: 2019Q4

REPORT INFORMATION
  Report Type: Other
  Country: CN (occurrence: CN)
  Receive Date: 20191013
  Receipt Date: 20191013
  Transmission Date: 20200122
  Serious: Yes (Hospitalization)
  Sender: FDA-Public Use
  Company Number: CN-JIANGSU HENGRUI MEDICINE CO., LTD.-2075597

PATIENT
  Age: 70 Year
  Sex: Female
  Weight: 57 kg

DRUGS (8)
  1. 0.9% SODIUM CHLORIDE INJECTION [Concomitant]
     Active Substance: SODIUM CHLORIDE
     Route: 041
     Dates: start: 20190905, end: 20190905
  2. CYCLOPHOSPHAMIDE FOR INJECTION USP, 500 MG, 1 G AND 2 G PER SINGLE-DOS [Suspect]
     Active Substance: CYCLOPHOSPHAMIDE
     Indication: CHEMOTHERAPY
     Route: 041
     Dates: start: 20190906, end: 20190906
  3. VINDESINE SULFATE FOR INJECTION [Suspect]
     Active Substance: VINDESINE SULFATE
     Route: 041
     Dates: start: 20190906, end: 20190906
  4. RITUXIMAB INJECTION [Suspect]
     Active Substance: RITUXIMAB
     Route: 041
     Dates: start: 20190905, end: 20190905
  5. PIRARUBICIN HYDROCHLORIDE FOR INJECTION [Suspect]
     Active Substance: PIRARUBICIN HYDROCHLORIDE
     Route: 041
     Dates: start: 20190906, end: 20190906
  6. 5% DEXTROSE INJECTION [Concomitant]
     Active Substance: DEXTROSE
     Route: 050
     Dates: start: 20190906, end: 20190906
  7. 0.9% SODIUM CHLORIDE INJECTION [Concomitant]
     Active Substance: SODIUM CHLORIDE
     Route: 041
     Dates: start: 20190906, end: 20190906
  8. PREDNISONE TABLETS [Suspect]
     Active Substance: PREDNISONE
     Route: 048
     Dates: start: 20190906, end: 20190910

REACTIONS (3)
  - Pyrexia [Recovering/Resolving]
  - Leukopenia [Recovering/Resolving]
  - Temperature intolerance [Recovering/Resolving]

NARRATIVE: CASE EVENT DATE: 20190914
